FAERS Safety Report 25708422 (Version 2)
Quarter: 2025Q3

REPORT INFORMATION
  Report Type: Spontaneous
  Country: JP (occurrence: JP)
  Receive Date: 20250821
  Receipt Date: 20250903
  Transmission Date: 20251021
  Serious: Yes (Death, Hospitalization, Other)
  Sender: ALEXION PHARMACEUTICALS
  Company Number: JP-AstraZeneca-CH-00916588A

PATIENT
  Age: 71 Year
  Sex: Female
  Weight: 55.4 kg

DRUGS (2)
  1. IMFINZI [Suspect]
     Active Substance: DURVALUMAB
     Indication: Hepatocellular carcinoma
     Dosage: 1500 MILLIGRAM, Q1H
     Dates: start: 20250610, end: 20250610
  2. IMJUDO [Suspect]
     Active Substance: TREMELIMUMAB\TREMELIMUMAB-ACTL
     Indication: Hepatocellular carcinoma
     Dates: start: 20250610, end: 20250610

REACTIONS (5)
  - Enterocolitis [Not Recovered/Not Resolved]
  - Muscular weakness [Unknown]
  - Neuropathy peripheral [Unknown]
  - Hepatitis [Unknown]
  - Death [Fatal]

NARRATIVE: CASE EVENT DATE: 20250619
